FAERS Safety Report 22705303 (Version 9)
Quarter: 2023Q4

REPORT INFORMATION
  Report Type: Report from Study
  Country: ZA (occurrence: None)
  Receive Date: 20230714
  Receipt Date: 20231002
  Transmission Date: 20240109
  Serious: Yes (Hospitalization)
  Sender: FDA-Public Use
  Company Number: ZA-Eisai Medical Research-EC-2023-144276

PATIENT
  Age: 60 Year
  Sex: Male
  Weight: 91.2 kg

DRUGS (12)
  1. LENVATINIB [Suspect]
     Active Substance: LENVATINIB
     Indication: Clear cell renal cell carcinoma
     Dosage: STARTING DOSE AT 20 MG, FLUCTUATED DOSES
     Route: 048
     Dates: start: 20230314, end: 20230705
  2. LENVATINIB [Suspect]
     Active Substance: LENVATINIB
     Route: 048
     Dates: start: 20230718
  3. QUAVONLIMAB [Suspect]
     Active Substance: QUAVONLIMAB
     Indication: Clear cell renal cell carcinoma
     Dosage: MK-1308A 425 MG CONTAINS QUAVONLIMAB 25 MG (+) PEMBROLIZUMAB 400 MG
     Route: 041
     Dates: start: 20230314, end: 20230425
  4. PEMBROLIZUMAB [Suspect]
     Active Substance: PEMBROLIZUMAB
     Dosage: MK-1308A 425 MG CONTAINS QUAVONLIMAB 25 MG (+) PEMBROLIZUMAB 400 MG
     Route: 041
     Dates: start: 20230718
  5. ASPAR [SPARFLOXACIN] [Concomitant]
     Dates: start: 202201
  6. HYDROCHLOROTHIAZIDE\TELMISARTAN [Concomitant]
     Active Substance: HYDROCHLOROTHIAZIDE\TELMISARTAN
     Dates: start: 201201
  7. FERROUS SULFATE [Concomitant]
     Active Substance: FERROUS SULFATE
     Dates: start: 20230101
  8. FOLIC ACID [Concomitant]
     Active Substance: FOLIC ACID
     Dates: start: 20230101
  9. BISOPROLOL [Concomitant]
     Active Substance: BISOPROLOL\BISOPROLOL FUMARATE
     Dates: start: 20230419
  10. QUETIAPINE [Concomitant]
     Active Substance: QUETIAPINE
     Dates: start: 20230315
  11. PREDNISONE [Concomitant]
     Active Substance: PREDNISONE
     Dates: start: 20230617, end: 20230622
  12. AMLODIPINE [Concomitant]
     Active Substance: AMLODIPINE BESYLATE
     Dates: start: 20230613

REACTIONS (1)
  - Anal abscess [Recovered/Resolved]

NARRATIVE: CASE EVENT DATE: 20230702
